FAERS Safety Report 8598201 (Version 4)
Quarter: 2015Q2

REPORT INFORMATION
  Report Type: Spontaneous
  Country: US (occurrence: US)
  Receive Date: 20120605
  Receipt Date: 20150518
  Transmission Date: 20150821
  Serious: Yes (Life-Threatening, Hospitalization, Other)
  Sender: FDA-Public Use
  Company Number: US-AMGEN-USASP2012027350

PATIENT
  Age: 48 Year
  Sex: Female

DRUGS (3)
  1. ENBREL [Suspect]
     Active Substance: ETANERCEPT
     Indication: PSORIASIS
     Dosage: 50 MG, QWK
     Route: 065
     Dates: start: 20111213
  2. ENBREL [Suspect]
     Active Substance: ETANERCEPT
     Indication: PSORIATIC ARTHROPATHY
  3. METHOTREXATE [Concomitant]
     Active Substance: METHOTREXATE
     Dosage: UNK

REACTIONS (23)
  - Weight decreased [Not Recovered/Not Resolved]
  - Skin disorder [Unknown]
  - Feeling abnormal [Not Recovered/Not Resolved]
  - Fatigue [Not Recovered/Not Resolved]
  - Injury [Unknown]
  - Influenza [Recovered/Resolved]
  - Apparent death [Unknown]
  - Haemorrhage [Not Recovered/Not Resolved]
  - Malaise [Unknown]
  - Oesophagitis [Not Recovered/Not Resolved]
  - Psoriasis [Unknown]
  - Fall [Recovered/Resolved]
  - Mood swings [Unknown]
  - Hypoaesthesia [Not Recovered/Not Resolved]
  - Stress [Unknown]
  - Williams syndrome [Unknown]
  - Limb injury [Recovered/Resolved]
  - Laceration [Not Recovered/Not Resolved]
  - Disorientation [Unknown]
  - Asperger^s disorder [Unknown]
  - Vomiting [Recovered/Resolved]
  - Paranoid personality disorder [Not Recovered/Not Resolved]
  - Musculoskeletal disorder [Not Recovered/Not Resolved]

NARRATIVE: CASE EVENT DATE: 2011
